FAERS Safety Report 16225999 (Version 1)
Quarter: 2019Q2

REPORT INFORMATION
  Report Type: Spontaneous
  Country: US (occurrence: US)
  Receive Date: 20190423
  Receipt Date: 20190423
  Transmission Date: 20190711
  Serious: Yes (Other)
  Sender: FDA-Public Use
  Company Number: US-NAPPMUNDI-USA-2018-0145318

PATIENT
  Sex: Male

DRUGS (6)
  1. TRAMADOL. [Suspect]
     Active Substance: TRAMADOL
     Dosage: UNK, DAILY
     Route: 065
  2. TRAMADOL. [Suspect]
     Active Substance: TRAMADOL
     Dosage: UNK
     Route: 065
  3. OXYCODONE HYDROCHLORIDE (SIMILAR TO NDA 22-272) [Suspect]
     Active Substance: OXYCODONE HYDROCHLORIDE
     Indication: PAIN
     Dosage: UNK, ONCE IN WHILE, MAYBE TWICE IN A MONTH
     Route: 048
  4. OXYCODONE HYDROCHLORIDE (SIMILAR TO NDA 22-272) [Suspect]
     Active Substance: OXYCODONE HYDROCHLORIDE
     Dosage: UNK
     Route: 048
  5. OXYCODONE HYDROCHLORIDE (SIMILAR TO NDA 22-272) [Suspect]
     Active Substance: OXYCODONE HYDROCHLORIDE
     Dosage: UNK, DAILY
     Route: 048
  6. TRAMADOL. [Suspect]
     Active Substance: TRAMADOL
     Indication: PAIN
     Dosage: UNK, UNK, ONCE IN WHILE, MAYBE TWICE IN A MONTH
     Route: 065

REACTIONS (10)
  - Suicidal ideation [Unknown]
  - Overdose [Recovered/Resolved]
  - Autophobia [Unknown]
  - Drug dependence [Unknown]
  - Feeling abnormal [Unknown]
  - Weight decreased [Unknown]
  - Anxiety [Recovering/Resolving]
  - Unevaluable event [Recovering/Resolving]
  - Depression [Recovering/Resolving]
  - Inadequate analgesia [Unknown]
